FAERS Safety Report 6059409-5 (Version None)
Quarter: 2009Q1

REPORT INFORMATION
  Report Type: 
  Country: None (occurrence: None)
  Receive Date: 20090130
  Receipt Date: 20090120
  Transmission Date: 20090719
  Serious: Yes (Hospitalization, Disabling)
  Sender: FDA-Public Use
  Company Number: FR-ELI_LILLY_AND_COMPANY-FR200812004008

PATIENT
  Sex: Male

DRUGS (2)
  1. GEMZAR [Suspect]
     Indication: ADENOCARCINOMA PANCREAS
     Dosage: 1700 MG, OTHER
     Route: 042
     Dates: start: 20061117, end: 20080806
  2. ZOPHREN [Concomitant]

REACTIONS (3)
  - ASCITES [None]
  - OEDEMA PERIPHERAL [None]
  - WEIGHT INCREASED [None]
